FAERS Safety Report 10143588 (Version 2)
Quarter: 2014Q2

REPORT INFORMATION
  Report Type: Spontaneous
  Country: US (occurrence: US)
  Receive Date: 20140430
  Receipt Date: 20140430
  Transmission Date: 20141212
  Serious: Yes (Other)
  Sender: FDA-Public Use
  Company Number: US-BAUSCH-BL-2013-002345

PATIENT
  Age: 53 Year
  Sex: Female

DRUGS (8)
  1. LOTEMAX (LOTEPREDNOL ETABONATE OPHTHALMIC SUSPENSION 0.5%) [Suspect]
     Indication: DRY EYE
     Dosage: 1 TO 2 DROPS FOR 3 WEEKS; LEFT EYE
     Route: 047
     Dates: start: 201011, end: 2012
  2. LOTEMAX (LOTEPREDNOL ETABONATE OPHTHALMIC SUSPENSION 0.5%) [Suspect]
     Dosage: 1 TO 2 DROPS FOR 3 WEEKS; RIGHT EYE
     Route: 047
     Dates: start: 201011, end: 2012
  3. LOTEMAX (LOTEPREDNOL ETABONATE OPHTHALMIC SUSPENSION 0.5%) [Suspect]
     Dosage: 1 TO 2 DROPS; AS NEEDED; RIGHT EYE
     Route: 047
     Dates: start: 2013, end: 201304
  4. LOTEMAX (LOTEPREDNOL ETABONATE OPHTHALMIC SUSPENSION 0.5%) [Suspect]
     Dosage: 1 TO 2 DROPS; AS NEEDED; LEFT EYE
     Route: 047
     Dates: start: 2013, end: 201304
  5. PREDNISONE [Concomitant]
     Indication: RESPIRATORY DISORDER
     Dosage: DOSAGE FORMS; ORAL
     Route: 048
     Dates: start: 201302, end: 201302
  6. PREDNISONE [Concomitant]
     Dosage: DOSAGE FORMS; ORAL
     Route: 048
     Dates: start: 201302, end: 201302
  7. PREDNISONE [Concomitant]
     Dosage: DOSAGE FORMS; ORAL
     Route: 048
     Dates: start: 201302, end: 201302
  8. PREDNISONE [Concomitant]
     Dosage: DOSAGE FORMS; ORAL
     Route: 048
     Dates: start: 201302, end: 201302

REACTIONS (2)
  - Off label use [Recovered/Resolved]
  - Cataract subcapsular [Not Recovered/Not Resolved]
